FAERS Safety Report 6184032-1 (Version None)
Quarter: 2009Q2

REPORT INFORMATION
  Report Type: 
  Country: None (occurrence: None)
  Receive Date: 20090508
  Receipt Date: 20090505
  Transmission Date: 20091009
  Serious: Yes (Life-Threatening, Other)
  Sender: FDA-Public Use
  Company Number: DE-BAYER-200919498GPV

PATIENT
  Age: 61 Year
  Sex: Male

DRUGS (8)
  1. ALEMTUZUMAB [Suspect]
     Indication: CHRONIC LYMPHOCYTIC LEUKAEMIA
     Dosage: DAY 8 OF CYCLE
     Route: 058
     Dates: start: 20080324
  2. DEXAMETHASONE 4MG TAB [Suspect]
     Indication: CHRONIC LYMPHOCYTIC LEUKAEMIA
     Dosage: 4 DAYS AT EACH CYCLE
     Route: 048
     Dates: start: 20080317, end: 20080320
  3. PEGFILGRASTIM [Suspect]
     Indication: PROPHYLAXIS
     Dosage: DAY 3 OF CYCLE
     Route: 058
  4. ALLOPURINOL [Concomitant]
     Dosage: TREATMENT DATA UNKNOWN
  5. COTRIM [Concomitant]
     Dosage: TREATMENT DATA UNKNOWN
  6. ACLOVIR [Concomitant]
     Dosage: TREATMENT DATA UNKNOWN
  7. LEVOFLOXACIN [Concomitant]
     Dosage: TREATMENT DATA UNKNOWN
  8. ENOXAPARIN SODIUM [Concomitant]
     Indication: DEEP VEIN THROMBOSIS

REACTIONS (3)
  - GASTROOESOPHAGEAL REFLUX DISEASE [None]
  - HAEMOGLOBIN DECREASED [None]
  - MELAENA [None]
